FAERS Safety Report 9972017 (Version 1)
Quarter: 2014Q1

REPORT INFORMATION
  Report Type: Report from Study
  Country: US (occurrence: US)
  Receive Date: 20140306
  Receipt Date: 20140306
  Transmission Date: 20141002
  Serious: No
  Sender: FDA-Public Use
  Company Number: US-ABBVIE-13P-163-1148499-00

PATIENT
  Age: 37 Year
  Sex: Female

DRUGS (7)
  1. HUMIRA [Suspect]
     Indication: COLITIS ULCERATIVE
     Dates: start: 20130907, end: 20130907
  2. HUMIRA [Suspect]
  3. IMURAN [Concomitant]
     Indication: COLITIS ULCERATIVE
     Dosage: 2 TABLETS DAILY (BY MOUTH)
  4. SULFASALAZINE [Concomitant]
     Indication: COLITIS ULCERATIVE
     Dosage: BY MOUTH
  5. PREDNISONE [Concomitant]
     Indication: COLITIS ULCERATIVE
     Dosage: TAPERING DOSE
  6. ESTROSTEP [Concomitant]
     Indication: HORMONE REPLACEMENT THERAPY
     Dosage: BY MOUTH DAILY
  7. EFFEXOR [Concomitant]
     Indication: DEPRESSION
     Dosage: BY MOUTH DAILY

REACTIONS (2)
  - Injection site pain [Recovered/Resolved]
  - Injection site pain [Recovered/Resolved]
